FAERS Safety Report 8161937-3 (Version None)
Quarter: 2012Q1

REPORT INFORMATION
  Report Type: 
  Country: None (occurrence: None)
  Receive Date: 20120224
  Receipt Date: 20120213
  Transmission Date: 20120608
  Serious: Yes (Other)
  Sender: FDA-Public Use
  Company Number: US-SANOFI-AVENTIS-2012SA009570

PATIENT
  Age: 69 Year
  Sex: Female

DRUGS (4)
  1. VALSARTAN [Concomitant]
  2. LOPRESSOR [Suspect]
     Route: 065
  3. LASIX [Concomitant]
  4. MULTAQ [Suspect]
     Indication: ATRIAL FIBRILLATION
     Route: 048
     Dates: start: 20100601

REACTIONS (11)
  - OEDEMA PERIPHERAL [None]
  - GASTROINTESTINAL DISORDER [None]
  - RENAL IMPAIRMENT [None]
  - CARDIAC PACEMAKER INSERTION [None]
  - INFLUENZA [None]
  - CONDITION AGGRAVATED [None]
  - UPPER RESPIRATORY TRACT INFECTION [None]
  - GAIT DISTURBANCE [None]
  - DYSURIA [None]
  - HEART RATE DECREASED [None]
  - NAUSEA [None]
